FAERS Safety Report 8560449-2 (Version None)
Quarter: 2012Q3

REPORT INFORMATION
  Report Type: 
  Country: None (occurrence: None)
  Receive Date: 20120802
  Receipt Date: 20120724
  Transmission Date: 20120928
  Serious: Yes (Other)
  Sender: FDA-Public Use
  Company Number: US-ASTRAZENECA-2012SE52744

PATIENT
  Age: 80 Year
  Sex: Female

DRUGS (3)
  1. NEXIUM [Suspect]
     Route: 048
  2. GLUCOPHAGE [Concomitant]
  3. PLAVIX [Concomitant]

REACTIONS (7)
  - ADVERSE EVENT [None]
  - MYOCARDIAL INFARCTION [None]
  - HYPOACUSIS [None]
  - BLOOD GLUCOSE ABNORMAL [None]
  - CEREBROVASCULAR ACCIDENT [None]
  - MALAISE [None]
  - DIABETES MELLITUS [None]
